FAERS Safety Report 13356108 (Version 2)
Quarter: 2017Q1

REPORT INFORMATION
  Report Type: Report from Study
  Country: GB (occurrence: GB)
  Receive Date: 20170321
  Receipt Date: 20170324
  Transmission Date: 20170429
  Serious: Yes (Death)
  Sender: FDA-Public Use
  Company Number: GB-PFIZER INC-2017117750

PATIENT
  Sex: Male
  Weight: 61.7 kg

DRUGS (12)
  1. COTRIMOXAZOLE [Concomitant]
     Active Substance: SULFAMETHOXAZOLE\TRIMETHOPRIM
     Indication: INFECTION PROPHYLAXIS
     Dosage: 80/400 MG, DAILY
     Route: 048
     Dates: start: 201609, end: 20170228
  2. DOXYCYCLINE. [Concomitant]
     Active Substance: DOXYCYCLINE
     Indication: INFECTION PROPHYLAXIS
     Dosage: 100 MG, DAILY
     Route: 048
     Dates: start: 20170228
  3. ACCRETE D3 [Concomitant]
     Indication: OSTEOPOROSIS
     Dosage: UNK, 2X/DAY
     Route: 048
     Dates: start: 20170120
  4. PARACETAMOL [Concomitant]
     Active Substance: ACETAMINOPHEN
     Indication: CHEST PAIN
     Dosage: 2 DF, AS NEEDED
     Route: 048
     Dates: start: 201606
  5. SENNA /00142201/ [Concomitant]
     Active Substance: SENNA LEAF
     Indication: CONSTIPATION
     Dosage: 2 UNK, AS NEEDED (2 TABLETS)
     Dates: start: 201611
  6. ZOMORPH [Concomitant]
     Active Substance: MORPHINE SULFATE
     Indication: CHEST PAIN
     Dosage: 40 MG, 2X/DAY
     Route: 048
     Dates: start: 20170120
  7. SALBUTAMOL [Concomitant]
     Active Substance: ALBUTEROL
     Indication: DYSPNOEA
     Dosage: 2.5 MG, DAILY
     Route: 055
     Dates: start: 201612
  8. DOCUSATE [Concomitant]
     Active Substance: DOCUSATE
     Indication: CONSTIPATION
     Dosage: 200 MG, 2X/DAY
     Route: 048
     Dates: start: 201611
  9. RANITIDINE. [Concomitant]
     Active Substance: RANITIDINE
     Indication: PROPHYLAXIS
     Dosage: 150 MG, 2X/DAY
     Route: 048
     Dates: start: 201609
  10. DEXAMETHASONE. [Concomitant]
     Active Substance: DEXAMETHASONE
     Indication: FATIGUE
     Dosage: 2 MG, ALTERNATE DAY
     Route: 048
     Dates: start: 20170120
  11. PALBOCICLIB [Suspect]
     Active Substance: PALBOCICLIB
     Indication: NON-SMALL CELL LUNG CANCER
     Dosage: 125 MG, 1X/DAY
     Route: 048
     Dates: start: 20170307, end: 20170313
  12. ALENDRONATE [Concomitant]
     Active Substance: ALENDRONATE SODIUM
     Indication: OSTEOPOROSIS
     Dosage: 70 MG, UNK
     Route: 048
     Dates: start: 20170120

REACTIONS (1)
  - Respiratory failure [Fatal]

NARRATIVE: CASE EVENT DATE: 20170316
